FAERS Safety Report 4888059-9 (Version None)
Quarter: 2006Q1

REPORT INFORMATION
  Report Type: 
  Country: None (occurrence: None)
  Receive Date: 20060123
  Receipt Date: 20051005
  Transmission Date: 20060701
  Serious: Yes (Death, Hospitalization)
  Sender: FDA-Public Use
  Company Number: US-MERCK-0510USA05525

PATIENT
  Age: 65 Year
  Sex: Male
  Weight: 192 kg

DRUGS (11)
  1. VIOXX [Suspect]
     Indication: PAIN IN EXTREMITY
     Route: 048
  2. VIOXX [Suspect]
     Indication: ARTHRITIS
     Route: 048
  3. ALEXAN (SPIRONOLACTONE) [Concomitant]
     Route: 065
  4. COREG [Concomitant]
     Route: 065
  5. ELAVIL [Concomitant]
     Route: 065
  6. LIPITOR [Concomitant]
     Route: 065
  7. LASIX [Concomitant]
     Route: 065
  8. AVANDIA [Concomitant]
     Route: 065
  9. AMARYL [Concomitant]
     Route: 065
  10. COZAAR [Concomitant]
     Route: 065
  11. ZAROXOLYN [Concomitant]
     Route: 065

REACTIONS (23)
  - ANAEMIA [None]
  - BLOOD PRESSURE INADEQUATELY CONTROLLED [None]
  - CARDIAC FAILURE CONGESTIVE [None]
  - CARDIOMYOPATHY [None]
  - CELLULITIS [None]
  - COR PULMONALE [None]
  - CORONARY ARTERY DISEASE [None]
  - DEPRESSION [None]
  - DIABETES MELLITUS [None]
  - DIABETIC NEPHROPATHY [None]
  - DYSPNOEA PAROXYSMAL NOCTURNAL [None]
  - HYPERCHOLESTEROLAEMIA [None]
  - HYPERLIPIDAEMIA [None]
  - HYPERTENSION [None]
  - MYOCARDIAL INFARCTION [None]
  - OSTEOARTHRITIS [None]
  - RECTAL HAEMORRHAGE [None]
  - RENAL FAILURE CHRONIC [None]
  - RESPIRATORY FAILURE [None]
  - SLEEP APNOEA SYNDROME [None]
  - SUDDEN CARDIAC DEATH [None]
  - VENTRICULAR EXTRASYSTOLES [None]
  - VENTRICULAR TACHYCARDIA [None]
